FAERS Safety Report 7422376-3 (Version None)
Quarter: 2011Q2

REPORT INFORMATION
  Report Type: 
  Country: None (occurrence: None)
  Receive Date: 20110419
  Receipt Date: 20110407
  Transmission Date: 20111010
  Serious: No
  Sender: FDA-Public Use
  Company Number: US-BIOGENIDEC-2011BI013396

PATIENT
  Sex: Female

DRUGS (1)
  1. TYSABRI [Suspect]
     Indication: MULTIPLE SCLEROSIS
     Route: 042
     Dates: start: 20100809

REACTIONS (7)
  - FATIGUE [None]
  - RASH [None]
  - COGNITIVE DISORDER [None]
  - PERONEAL NERVE PALSY [None]
  - SKIN HAEMORRHAGE [None]
  - NASOPHARYNGITIS [None]
  - FALL [None]
